FAERS Safety Report 5503698-X (Version None)
Quarter: 2007Q4

REPORT INFORMATION
  Report Type: 
  Country: None (occurrence: None)
  Receive Date: 20071101
  Receipt Date: 20071023
  Transmission Date: 20080405
  Serious: Yes (Hospitalization)
  Sender: FDA-Public Use
  Company Number: US-JNJFOC-20070603686

PATIENT
  Sex: Female

DRUGS (3)
  1. REMICADE [Suspect]
     Indication: RHEUMATOID ARTHRITIS
     Route: 042
  2. PREDNISONE [Concomitant]
     Indication: CROHN'S DISEASE
     Dosage: 3-6 MONTHS
  3. METHOTREXATE [Concomitant]
     Indication: CROHN'S DISEASE
     Dosage: { 3 MONTHS

REACTIONS (2)
  - EYE PAIN [None]
  - PHOTOPHOBIA [None]
